FAERS Safety Report 12309999 (Version 1)
Quarter: 2016Q2

REPORT INFORMATION
  Report Type: Spontaneous
  Country: US (occurrence: None)
  Receive Date: 20160426
  Receipt Date: 20160426
  Transmission Date: 20160815
  Serious: Yes (Other)
  Sender: FDA-Public Use
  Company Number: None

PATIENT
  Age: 52 Year
  Sex: Female

DRUGS (6)
  1. VAGIFEM [Concomitant]
     Active Substance: ESTRADIOL
  2. TECTA [Concomitant]
     Active Substance: PANTOPRAZOLE MAGNESIUM
  3. MULTIVITAMIN [Concomitant]
     Active Substance: VITAMINS
  4. ASTRO-PANTOPRAZOLE MAGNESIUM GENERIC [Suspect]
     Active Substance: PANTOPRAZOLE MAGNESIUM
     Indication: GASTRIC PH DECREASED
     Route: 048
  5. IRON [Concomitant]
     Active Substance: IRON
  6. PENTASA [Concomitant]
     Active Substance: MESALAMINE

REACTIONS (5)
  - Gastrointestinal disorder [None]
  - Product substitution issue [None]
  - Intestinal haemorrhage [None]
  - Impaired work ability [None]
  - Drug ineffective [None]

NARRATIVE: CASE EVENT DATE: 20160402
